FAERS Safety Report 25229447 (Version 2)
Quarter: 2025Q2

REPORT INFORMATION
  Report Type: Report from Study
  Country: US (occurrence: US)
  Receive Date: 20250423
  Receipt Date: 20250604
  Transmission Date: 20250717
  Serious: Yes (Other)
  Sender: TAKEDA
  Company Number: US-TAKEDA-2023TUS060449

PATIENT
  Sex: Female

DRUGS (4)
  1. IXAZOMIB [Suspect]
     Active Substance: IXAZOMIB
     Indication: Plasma cell myeloma
  2. IXAZOMIB [Suspect]
     Active Substance: IXAZOMIB
  3. IXAZOMIB [Suspect]
     Active Substance: IXAZOMIB
     Dosage: 2.3 MILLIGRAM, QD
     Dates: start: 202112
  4. IXAZOMIB [Suspect]
     Active Substance: IXAZOMIB

REACTIONS (11)
  - Rheumatoid arthritis [Unknown]
  - Neuropathy peripheral [Unknown]
  - Paraesthesia [Unknown]
  - Burning sensation [Unknown]
  - Peripheral swelling [Unknown]
  - Oedema [Unknown]
  - Swelling [Unknown]
  - Pain [Unknown]
  - Pain in extremity [Unknown]
  - Erythema [Unknown]
  - Asthenia [Not Recovered/Not Resolved]
